FAERS Safety Report 22541874 (Version 1)
Quarter: 2023Q2

REPORT INFORMATION
  Report Type: Spontaneous
  Country: US (occurrence: None)
  Receive Date: 20230608
  Receipt Date: 20230608
  Transmission Date: 20230722
  Serious: Yes (Life-Threatening, Hospitalization)
  Sender: FDA-Public Use
  Company Number: None

PATIENT
  Age: 75 Year
  Sex: Male

DRUGS (2)
  1. ENOXAPARIN [Suspect]
     Active Substance: ENOXAPARIN
  2. APIXABAN [Suspect]
     Active Substance: APIXABAN

REACTIONS (6)
  - Abdominal pain [None]
  - Ureteric obstruction [None]
  - Ureterolithiasis [None]
  - Escherichia bacteraemia [None]
  - Retroperitoneal haemorrhage [None]
  - Haemoglobin decreased [None]

NARRATIVE: CASE EVENT DATE: 20230425
